FAERS Safety Report 13377910 (Version 4)
Quarter: 2017Q4

REPORT INFORMATION
  Report Type: Report from Study
  Country: CO (occurrence: CO)
  Receive Date: 20170328
  Receipt Date: 20171017
  Transmission Date: 20180320
  Serious: Yes (Other)
  Sender: FDA-Public Use
  Company Number: CO-REGENERON PHARMACEUTICALS, INC.-2017-13565

PATIENT

DRUGS (7)
  1. EYLEA [Suspect]
     Active Substance: AFLIBERCEPT
     Dosage: 4TH
     Dates: start: 20170222, end: 20170222
  2. EYLEA [Suspect]
     Active Substance: AFLIBERCEPT
     Dosage: 5TH
     Dates: start: 20170606, end: 20170606
  3. EYLEA [Suspect]
     Active Substance: AFLIBERCEPT
     Dosage: 3RD
     Dates: start: 20161109, end: 20161109
  4. EYLEA [Suspect]
     Active Substance: AFLIBERCEPT
     Dosage: 2ND
     Dates: start: 20161009, end: 20161009
  5. EYLEA [Suspect]
     Active Substance: AFLIBERCEPT
     Dosage: 7TH
     Dates: start: 20170906, end: 20170906
  6. EYLEA [Suspect]
     Active Substance: AFLIBERCEPT
     Indication: AGE-RELATED MACULAR DEGENERATION
     Dosage: 2 MG, Q2MON, 1ST
     Dates: start: 20160909
  7. EYLEA [Suspect]
     Active Substance: AFLIBERCEPT
     Dosage: 6TH
     Dates: start: 20170808, end: 20170808

REACTIONS (4)
  - Inappropriate schedule of drug administration [Not Recovered/Not Resolved]
  - Vision blurred [Not Recovered/Not Resolved]
  - Lower limb fracture [Unknown]
  - Accident [Unknown]

NARRATIVE: CASE EVENT DATE: 201701
